FAERS Safety Report 14023797 (Version 1)
Quarter: 2017Q3

REPORT INFORMATION
  Report Type: Spontaneous
  Country: US (occurrence: US)
  Receive Date: 20170929
  Receipt Date: 20170929
  Transmission Date: 20171128
  Serious: No
  Sender: FDA-Public Use
  Company Number: US-JUBILANT CADISTA PHARMACEUTICALS-2016JUB00384

PATIENT
  Sex: Female
  Weight: 68.27 kg

DRUGS (3)
  1. PREDNISONE. [Suspect]
     Active Substance: PREDNISONE
     Indication: NERVE COMPRESSION
     Dosage: 4 TABLETS, 1X/DAY
     Route: 048
     Dates: start: 20161026, end: 20161029
  2. PREDNISONE. [Suspect]
     Active Substance: PREDNISONE
     Dosage: 3 TABLETS, 1X/DAY
     Route: 048
     Dates: start: 20161030, end: 20161101
  3. PREDNISONE. [Suspect]
     Active Substance: PREDNISONE
     Dosage: UNK UNK, ONCE
     Route: 048
     Dates: start: 20161104, end: 20161104

REACTIONS (1)
  - Chest pain [Recovering/Resolving]

NARRATIVE: CASE EVENT DATE: 2016
